FAERS Safety Report 5225815-1 (Version None)
Quarter: 2007Q1

REPORT INFORMATION
  Report Type: 
  Country: None (occurrence: None)
  Receive Date: 20070130
  Receipt Date: 20070130
  Transmission Date: 20070707
  Serious: No
  Sender: FDA-Public Use
  Company Number: None

PATIENT
  Sex: Female
  Weight: 97.5234 kg

DRUGS (4)
  1. ZICAM [Suspect]
     Indication: NASAL CONGESTION
     Dosage: 1 ^SQUIRT^ PER NOSTRIL    1   NASAL
     Route: 045
     Dates: start: 20061222, end: 20061226
  2. ZICAM [Suspect]
     Indication: NASOPHARYNGITIS
     Dosage: 1 ^SQUIRT^ PER NOSTRIL    1   NASAL
     Route: 045
     Dates: start: 20061222, end: 20061226
  3. ZICAM [Suspect]
     Indication: NASAL CONGESTION
     Dosage: 1 ^SQUIRT^ PER NOSTRIL    1   NASAL
     Route: 045
     Dates: start: 20061222, end: 20061231
  4. ZICAM [Suspect]
     Indication: NASOPHARYNGITIS
     Dosage: 1 ^SQUIRT^ PER NOSTRIL    1   NASAL
     Route: 045
     Dates: start: 20061222, end: 20061231

REACTIONS (6)
  - ANOSMIA [None]
  - BALANCE DISORDER [None]
  - BURNING SENSATION [None]
  - DYSGEUSIA [None]
  - PAIN [None]
  - SINUS DISORDER [None]
